FAERS Safety Report 7585297-1 (Version None)
Quarter: 2011Q2

REPORT INFORMATION
  Report Type: 
  Country: None (occurrence: None)
  Receive Date: 20110623
  Receipt Date: 20110609
  Transmission Date: 20111010
  Serious: Yes (Disabling, Other)
  Sender: FDA-Public Use
  Company Number: AUR-APL-2011-02998

PATIENT
  Age: 82 Year
  Sex: Female
  Weight: 68.03 kg

DRUGS (5)
  1. LISINOPRIL AND HYDROCHLOROTHIAZIDE [Suspect]
     Indication: BLOOD PRESSURE ABNORMAL
     Dosage: 20/12.5 MG (1 D),
  2. METOPROLOL TARTRATE [Concomitant]
  3. CRESTOR [Concomitant]
  4. ACETAMINOPHEN [Concomitant]
  5. EFFEXOR XR [Suspect]
     Indication: DEPRESSION
     Dosage: 75 MG, 1 D, ORAL
     Route: 048

REACTIONS (4)
  - GOUT [None]
  - ARTHROPATHY [None]
  - AGITATION [None]
  - PRODUCT SUBSTITUTION ISSUE [None]
